FAERS Safety Report 24689303 (Version 2)
Quarter: 2024Q4

REPORT INFORMATION
  Report Type: Report from Study
  Country: US (occurrence: US)
  Receive Date: 20241203
  Receipt Date: 20241218
  Transmission Date: 20250114
  Serious: Yes (Death, Hospitalization, Other)
  Sender: TAKEDA
  Company Number: US-TAKEDA-2024TUS119779

PATIENT
  Age: 63 Year
  Sex: Female

DRUGS (1)
  1. PONATINIB [Suspect]
     Active Substance: PONATINIB
     Indication: Acute lymphocytic leukaemia
     Dosage: 30 MILLIGRAM, QD

REACTIONS (5)
  - Death [Fatal]
  - Feeling abnormal [Unknown]
  - Stress [Unknown]
  - Insomnia [Unknown]
  - Vision blurred [Unknown]

NARRATIVE: CASE EVENT DATE: 20241202
